FAERS Safety Report 14970092 (Version 1)
Quarter: 2018Q3

REPORT INFORMATION
  Report Type: Spontaneous
  Country: US (occurrence: US)
  Receive Date: 20180530
  Receipt Date: 20180530
  Transmission Date: 20181010
  Serious: No
  Sender: FDA-Public Use
  Company Number: US-KADMON PHARMACEUTICALS, LLC-KAD201708-000971

PATIENT
  Age: 63 Year
  Sex: Male

DRUGS (2)
  1. PEGINTERFERON ALFA?2A PROCLICK AUTOINJECTOR [Suspect]
     Active Substance: PEGINTERFERON ALFA-2A
     Indication: CHRONIC HEPATITIS C
     Route: 058
     Dates: start: 20130402
  2. RIBASPHERE [Suspect]
     Active Substance: RIBAVIRIN
     Indication: CHRONIC HEPATITIS C
     Dates: start: 20130402

REACTIONS (10)
  - Thrombosis [Unknown]
  - Exostosis [Unknown]
  - Irritability [Unknown]
  - Fatigue [Unknown]
  - White blood cell count decreased [Unknown]
  - Weight increased [Unknown]
  - Viral load increased [Unknown]
  - Platelet count decreased [Unknown]
  - Ligament sprain [Unknown]
  - Energy increased [Unknown]
